FAERS Safety Report 10899286 (Version 1)
Quarter: 2015Q1

REPORT INFORMATION
  Report Type: Report from Study
  Country: CO (occurrence: CO)
  Receive Date: 20150309
  Receipt Date: 20150309
  Transmission Date: 20150721
  Serious: Yes (Death, Hospitalization, Other)
  Sender: FDA-Public Use
  Company Number: CO-BRISTOL-MYERS SQUIBB COMPANY-BMS-2014-007478

PATIENT
  Sex: Male

DRUGS (1)
  1. CETUXIMAB [Suspect]
     Active Substance: CETUXIMAB
     Indication: COLORECTAL CANCER METASTATIC
     Dosage: UNK
     Route: 042
     Dates: end: 20141107

REACTIONS (6)
  - Intestinal obstruction [Unknown]
  - General physical health deterioration [Recovering/Resolving]
  - Cachexia [Unknown]
  - Aphagia [Unknown]
  - Thyroid disorder [Unknown]
  - Death [Fatal]
